FAERS Safety Report 7756956-2 (Version None)
Quarter: 2011Q3

REPORT INFORMATION
  Report Type: 
  Country: None (occurrence: None)
  Receive Date: 20110916
  Receipt Date: 20110913
  Transmission Date: 20111222
  Serious: Yes (Hospitalization)
  Sender: FDA-Public Use
  Company Number: PHHO2011BE07189

PATIENT
  Sex: Female
  Weight: 72 kg

DRUGS (10)
  1. OMEPRAZOLE [Concomitant]
     Dosage: UNK
     Dates: end: 20110425
  2. LITICAN [Concomitant]
     Dosage: UNK
     Dates: end: 20110425
  3. MEDROL [Concomitant]
     Indication: PYREXIA
  4. NO TREATMENT RECEIVED [Suspect]
     Indication: BREAST CANCER
     Dosage: NO TREATMENT
  5. CYCLOPHOSPHAMIDE [Suspect]
     Indication: BREAST CANCER
     Dosage: 910 MG, UNK
     Route: 042
     Dates: start: 20110411
  6. ACETAMINOPHEN [Concomitant]
     Indication: HEADACHE
     Dosage: 500 MG, UNK
     Route: 048
     Dates: end: 20110425
  7. MEDROL [Concomitant]
     Indication: INFECTION
     Dosage: UNK
     Dates: end: 20110425
  8. FLURACEDYL [Suspect]
     Dosage: 910 MG, UNK
     Route: 042
     Dates: start: 20110411
  9. EPIRUBICIN HYDROCHLORIDE [Suspect]
     Dosage: 182 MG, UNK
     Route: 042
     Dates: start: 20110411
  10. XANAX [Concomitant]
     Dosage: UNK
     Dates: end: 20110425

REACTIONS (3)
  - PANCYTOPENIA [None]
  - FEBRILE NEUTROPENIA [None]
  - STAPHYLOCOCCAL INFECTION [None]
